FAERS Safety Report 22314945 (Version 1)
Quarter: 2023Q2

REPORT INFORMATION
  Report Type: Spontaneous
  Country: FI (occurrence: FI)
  Receive Date: 20230512
  Receipt Date: 20230512
  Transmission Date: 20230721
  Serious: Yes (Death, Other)
  Sender: FDA-Public Use
  Company Number: None

PATIENT
  Age: 82 Year
  Sex: Female

DRUGS (8)
  1. KEYTRUDA [Suspect]
     Active Substance: PEMBROLIZUMAB
     Indication: Breast cancer
     Dosage: 200,MG,X2
     Route: 042
     Dates: start: 20230203, end: 20230224
  2. KEYTRUDA [Suspect]
     Active Substance: PEMBROLIZUMAB
     Dosage: 200,MG,X2
     Route: 042
     Dates: start: 20230203, end: 20230224
  3. MICARDIS [Concomitant]
     Active Substance: TELMISARTAN
  4. CYCLOPHOSPHAMIDE [Concomitant]
     Active Substance: CYCLOPHOSPHAMIDE
     Indication: Breast cancer
     Dosage: 1,G,X1
     Route: 042
     Dates: start: 20230203, end: 20230203
  5. EPIRUBICIN [Concomitant]
     Active Substance: EPIRUBICIN
     Indication: Breast cancer
     Dosage: 100,MG,X2
     Route: 042
     Dates: start: 20230203, end: 20230224
  6. LERCANIDIPINE HYDROCHLORIDE [Concomitant]
     Active Substance: LERCANIDIPINE HYDROCHLORIDE
  7. METOPROLOL TARTRATE [Concomitant]
     Active Substance: METOPROLOL TARTRATE
  8. SPIRONOLACTONE [Concomitant]
     Active Substance: SPIRONOLACTONE

REACTIONS (6)
  - Myocarditis [Fatal]
  - Pulmonary embolism [Fatal]
  - Myositis [Fatal]
  - Atrioventricular block complete [Fatal]
  - Haemoglobin decreased [Fatal]
  - Hepatitis [Fatal]

NARRATIVE: CASE EVENT DATE: 20230308
